FAERS Safety Report 6068576-9 (Version None)
Quarter: 2009Q1

REPORT INFORMATION
  Report Type: 
  Country: None (occurrence: None)
  Receive Date: 20090206
  Receipt Date: 20090126
  Transmission Date: 20090719
  Serious: Yes (Other)
  Sender: FDA-Public Use
  Company Number: CA-PFIZER INC-2008160069

PATIENT

DRUGS (4)
  1. VIBRAMYCIN [Suspect]
     Indication: URINARY TRACT INFECTION
     Dosage: 100 MG, 2X/DAY
     Route: 048
     Dates: start: 20080910, end: 20080925
  2. PANTOPRAZOLE SODIUM [Concomitant]
  3. LORAZEPAM [Concomitant]
     Dosage: UNK
  4. PANTOPRAZOLE [Concomitant]
     Dosage: UNK

REACTIONS (10)
  - ABNORMAL BEHAVIOUR [None]
  - ASTHMA [None]
  - CATATONIA [None]
  - CONVERSION DISORDER [None]
  - DEPRESSED MOOD [None]
  - DEPRESSION [None]
  - HALLUCINATION [None]
  - IRRITABILITY [None]
  - MOOD ALTERED [None]
  - SUICIDAL IDEATION [None]
